FAERS Safety Report 23159896 (Version 1)
Quarter: 2023Q4

REPORT INFORMATION
  Report Type: Spontaneous
  Country: DK (occurrence: DK)
  Receive Date: 20231108
  Receipt Date: 20231108
  Transmission Date: 20240109
  Serious: Yes (Death, Hospitalization)
  Sender: FDA-Public Use
  Company Number: DK-VERTEX PHARMACEUTICALS-2023-016685

PATIENT
  Age: 2 Year
  Sex: Female

DRUGS (1)
  1. ORKAMBI [Suspect]
     Active Substance: IVACAFTOR\LUMACAFTOR
     Indication: Cystic fibrosis
     Dosage: LUMACAFTOR/IVACAFTOR
     Route: 048

REACTIONS (4)
  - Death [Fatal]
  - Cardiac arrest [Unknown]
  - Laryngitis [Unknown]
  - Subglottic laryngitis [Unknown]

NARRATIVE: CASE EVENT DATE: 20231101
